FAERS Safety Report 11059614 (Version 1)
Quarter: 2015Q2

REPORT INFORMATION
  Report Type: Spontaneous
  Country: GB (occurrence: GB)
  Receive Date: 20150423
  Receipt Date: 20150423
  Transmission Date: 20150821
  Serious: Yes (Other)
  Sender: FDA-Public Use
  Company Number: GB-PFIZER INC-2015136651

PATIENT
  Age: 48 Year
  Sex: Female
  Weight: 85 kg

DRUGS (5)
  1. NOVORAPID [Concomitant]
     Active Substance: INSULIN ASPART
  2. LANTUS [Concomitant]
     Active Substance: INSULIN GLARGINE
  3. CHAMPIX [Suspect]
     Active Substance: VARENICLINE TARTRATE
     Indication: SMOKING CESSATION THERAPY
     Dosage: 0.5 MG, UNK
     Route: 048
     Dates: start: 20150328, end: 20150402
  4. CHAMPIX [Suspect]
     Active Substance: VARENICLINE TARTRATE
     Dosage: 1 MG, UNK
     Route: 048
     Dates: start: 20150403, end: 20150410
  5. SERTRALINE [Concomitant]
     Active Substance: SERTRALINE HYDROCHLORIDE
     Indication: DEPRESSED MOOD
     Dosage: 5 MG, UNK

REACTIONS (14)
  - Thinking abnormal [Recovered/Resolved]
  - Insomnia [Unknown]
  - Headache [Not Recovered/Not Resolved]
  - Hypophagia [Not Recovered/Not Resolved]
  - Drug effect incomplete [Unknown]
  - Mood swings [Unknown]
  - Anger [Not Recovered/Not Resolved]
  - Vomiting [Unknown]
  - Nausea [Not Recovered/Not Resolved]
  - Blood glucose increased [Unknown]
  - Tearfulness [Not Recovered/Not Resolved]
  - Paranoia [Recovering/Resolving]
  - Abnormal dreams [Not Recovered/Not Resolved]
  - Fatigue [Unknown]

NARRATIVE: CASE EVENT DATE: 2015
